FAERS Safety Report 10370261 (Version 1)
Quarter: 2014Q3

REPORT INFORMATION
  Report Type: Spontaneous
  Country: US (occurrence: None)
  Receive Date: 20140805
  Receipt Date: 20140805
  Transmission Date: 20150326
  Serious: Yes (Hospitalization, Congenital Anomaly, Other)
  Sender: FDA-Public Use
  Company Number: 2014AP003754

PATIENT
  Age: 0 Day
  Sex: Female
  Weight: 3 kg

DRUGS (5)
  1. MACROBID [Concomitant]
     Active Substance: NITROFURANTOIN\NITROFURANTOIN MONOHYDRATE
  2. HEMOCYTE-F (FERROUS FUMARATE, FOLIC ACID) [Concomitant]
  3. PAROXETINE HYDROCHLORIDE (PAROXETINE) TABLET, UNK [Suspect]
     Active Substance: PAROXETINE HYDROCHLORIDE
     Indication: FOETAL EXPOSURE DURING PREGNANCY
     Route: 064
     Dates: end: 2006
  4. GYNAZOLE (BUTOCONAZOLE NITRATE) [Concomitant]
  5. OBTREX (ASCORBIC ACID, COLECALCIFEROL, CYANOCOBALAMIN, DOCUSATE SODIUM, FOLIC ACID, MAGNESIUM, NICOTINAMIDE, PYRIDOXINE HYDROCHLORIDE, RETINOL, RIBOFLAVIN, SELENIUM, THIAMINE HYDROCHLORIDE, TOCOPHEROL, ZINC) [Concomitant]

REACTIONS (6)
  - Fallot^s tetralogy [None]
  - Maternal drugs affecting foetus [None]
  - Atrial septal defect [None]
  - Electroencephalogram abnormal [None]
  - Pulmonary valve stenosis [None]
  - Muscle tone disorder [None]

NARRATIVE: CASE EVENT DATE: 20060208
